FAERS Safety Report 6436182-X (Version None)
Quarter: 2009Q4

REPORT INFORMATION
  Report Type: 
  Country: None (occurrence: None)
  Receive Date: 20091111
  Receipt Date: 20091102
  Transmission Date: 20100525
  Serious: No
  Sender: FDA-Public Use
  Company Number: US-ROCHE-663979

PATIENT
  Sex: Male
  Weight: 57.8 kg

DRUGS (4)
  1. TAMIFLU [Suspect]
     Dosage: FREQUENCY: DAILY
     Route: 048
     Dates: start: 20091009, end: 20091016
  2. LAMICTAL [Concomitant]
     Indication: BIPOLAR DISORDER
     Route: 048
     Dates: end: 20091016
  3. FLUNASE [Concomitant]
  4. SINGULAIR [Concomitant]

REACTIONS (1)
  - HALLUCINATIONS, MIXED [None]
